FAERS Safety Report 9345622 (Version 1)
Quarter: 2013Q2

REPORT INFORMATION
  Report Type: Spontaneous
  Country: US (occurrence: US)
  Receive Date: 20130613
  Receipt Date: 20130613
  Transmission Date: 20140414
  Serious: Yes (Death)
  Sender: FDA-Public Use
  Company Number: US-SANOFI-AVENTIS-2013SA058681

PATIENT
  Sex: Male

DRUGS (4)
  1. APIDRA SOLOSTAR [Suspect]
  2. APIDRA SOLOSTAR [Suspect]
  3. SOLOSTAR [Suspect]
  4. SOLOSTAR [Suspect]

REACTIONS (1)
  - Death [Fatal]
